FAERS Safety Report 7008959-3 (Version None)
Quarter: 2010Q3

REPORT INFORMATION
  Report Type: 
  Country: None (occurrence: None)
  Receive Date: 20100923
  Receipt Date: 20100917
  Transmission Date: 20110219
  Serious: Yes (Death)
  Sender: FDA-Public Use
  Company Number: PHHY2010CA61538

PATIENT
  Sex: Female

DRUGS (5)
  1. CLOZARIL [Suspect]
     Indication: SCHIZOPHRENIA
     Dosage: 200 MG
     Route: 048
     Dates: start: 20000427
  2. METFORMIN [Concomitant]
  3. ATORVASTATIN CALCIUM [Concomitant]
  4. RAMIPRIL [Concomitant]
  5. PIOGLITAZONE [Concomitant]

REACTIONS (1)
  - LUNG CANCER METASTATIC [None]
